FAERS Safety Report 5847793-4 (Version None)
Quarter: 2008Q3

REPORT INFORMATION
  Report Type: 
  Country: None (occurrence: None)
  Receive Date: 20080814
  Receipt Date: 20080804
  Transmission Date: 20090109
  Serious: Yes (Life-Threatening, Other)
  Sender: FDA-Public Use
  Company Number: GXKR2008AT07297

PATIENT
  Sex: Female

DRUGS (6)
  1. PREDNISONE [Suspect]
     Indication: IMMUNOSUPPRESSION
  2. MYCOPHENOLATE MOFETIL [Suspect]
     Indication: IMMUNOSUPPRESSION
  3. CYCLOSPORINE [Suspect]
     Indication: IMMUNOSUPPRESSION
  4. FLUDARABINE PHOSPHATE [Concomitant]
  5. MELPHALAN (MELPHALAN) [Concomitant]
  6. ALEMTUZUMAB (ALEMTUZUMAB, CAMPATH-1H) [Concomitant]

REACTIONS (10)
  - ASPERGILLOSIS [None]
  - CONVULSION [None]
  - CYTOMEGALOVIRUS INFECTION [None]
  - DYSPHAGIA [None]
  - ENCEPHALOPATHY [None]
  - HEPATOSPLENOMEGALY [None]
  - HUMAN HERPES VIRUS 6 SEROLOGY POSITIVE [None]
  - LYMPHOHISTIOCYTOSIS [None]
  - PANCYTOPENIA [None]
  - VISUAL IMPAIRMENT [None]
